FAERS Safety Report 9558261 (Version 1)
Quarter: 2013Q3

REPORT INFORMATION
  Report Type: Spontaneous
  Country: IL (occurrence: IL)
  Receive Date: 20130926
  Receipt Date: 20130926
  Transmission Date: 20140515
  Serious: Yes (Other)
  Sender: FDA-Public Use
  Company Number: IL-PFIZER INC-2013273806

PATIENT
  Age: 67 Year
  Sex: Female

DRUGS (1)
  1. NEURONTIN [Suspect]
     Dosage: 200 MG, 2X/DAY
     Dates: start: 199709

REACTIONS (3)
  - Off label use [Unknown]
  - Myasthenia gravis [Recovered/Resolved]
  - Dry mouth [Recovered/Resolved]
